FAERS Safety Report 22765392 (Version 2)
Quarter: 2023Q4

REPORT INFORMATION
  Report Type: Spontaneous
  Country: US (occurrence: US)
  Receive Date: 20230731
  Receipt Date: 20231016
  Transmission Date: 20240110
  Serious: No
  Sender: FDA-Public Use
  Company Number: US-BRISTOL-MYERS SQUIBB COMPANY-2023-107037

PATIENT
  Age: 76 Year
  Sex: Female

DRUGS (2)
  1. REVLIMID [Suspect]
     Active Substance: LENALIDOMIDE
     Indication: Plasma cell myeloma
     Dosage: DOSE : 25MG, 5MG;     FREQ : 5MG DOSE FOR 3 WEEKS AND 1 WEEK OFF
     Route: 048
  2. REVLIMID [Suspect]
     Active Substance: LENALIDOMIDE
     Dosage: DOSE : 5MG, 25MG;     FREQ : 5MG DOSE FOR 3 WEEKS AND 1 WEEK OFF
     Route: 048
     Dates: start: 20230412

REACTIONS (2)
  - Rash [Unknown]
  - Rash macular [Not Recovered/Not Resolved]

NARRATIVE: CASE EVENT DATE: 20230701
